FAERS Safety Report 8571328-9 (Version None)
Quarter: 2012Q3

REPORT INFORMATION
  Report Type: 
  Country: None (occurrence: None)
  Receive Date: 20120806
  Receipt Date: 20120730
  Transmission Date: 20120928
  Serious: Yes (Death, Hospitalization)
  Sender: FDA-Public Use
  Company Number: JP-SHIRE-SPV1-2008-01352

PATIENT

DRUGS (14)
  1. CALCIUM LACTATE [Concomitant]
     Indication: MUCOPOLYSACCHARIDOSIS II
     Dosage: 1 G, 2X/DAY:BID
     Route: 065
     Dates: end: 20080501
  2. CLOSTRIDIUM BUTYRICUM [Concomitant]
     Indication: MUCOPOLYSACCHARIDOSIS II
     Dosage: 0.5 G, 3X/DAY:TID
     Route: 065
     Dates: end: 20080501
  3. LYSOZYME HYDROCHLORIDE [Concomitant]
     Indication: MUCOPOLYSACCHARIDOSIS II
     Dosage: 2 ML, 3X/DAY:TID
     Route: 065
     Dates: end: 20080612
  4. IDURSULFASE [Suspect]
     Indication: MUCOPOLYSACCHARIDOSIS II
     Dosage: 18 MG, 1X/WEEK
     Route: 041
     Dates: start: 20070409, end: 20080522
  5. ALBUMIN TANNATE [Concomitant]
     Indication: MUCOPOLYSACCHARIDOSIS II
     Dosage: 1 G, 3X/DAY:TID
     Route: 065
     Dates: end: 20080501
  6. LACTOMIN [Concomitant]
     Indication: MUCOPOLYSACCHARIDOSIS II
     Dosage: 1 G, 3X/DAY:TID
     Route: 065
     Dates: end: 20080501
  7. CARBAMAZEPINE [Concomitant]
     Indication: MUCOPOLYSACCHARIDOSIS II
     Dosage: 100 MG, 2X/DAY:BID
     Route: 065
     Dates: end: 20080624
  8. AMBROXOL HYDROCHLORIDE [Concomitant]
     Indication: MUCOPOLYSACCHARIDOSIS II
     Dosage: 0.1 ML, 3X/DAY:TID
     Route: 065
     Dates: end: 20080501
  9. CARVEDILOL [Concomitant]
     Indication: MUCOPOLYSACCHARIDOSIS II
     Dosage: 1.25 MG, 2X/DAY:BID
     Route: 065
     Dates: end: 20080501
  10. CARBOCISTEINE [Concomitant]
     Indication: MUCOPOLYSACCHARIDOSIS II
     Dosage: 0.2 ML, 3X/DAY:TID
     Route: 065
     Dates: end: 20080514
  11. ENALAPRIL MALEATE [Concomitant]
     Indication: MUCOPOLYSACCHARIDOSIS II
     Dosage: 5 MG, 1X/DAY:QD
     Route: 065
     Dates: end: 20080513
  12. SODIUM CHLORIDE [Concomitant]
     Indication: MUCOPOLYSACCHARIDOSIS II
     Dosage: 1 G, 1X/DAY:QD
     Route: 065
     Dates: end: 20080501
  13. LATANOPROST [Concomitant]
     Indication: PRODUCT USED FOR UNKNOWN INDICATION
     Dosage: 1 GTT(1 EYE DROP)T, 1X/DAY:QD
     Route: 047
     Dates: end: 20080612
  14. SPIRONOLACTONE [Concomitant]
     Indication: MUCOPOLYSACCHARIDOSIS II
     Dosage: 50 MG, 2X/DAY:BID
     Route: 065
     Dates: end: 20080501

REACTIONS (6)
  - DISSEMINATED INTRAVASCULAR COAGULATION [None]
  - INFECTION [None]
  - GENERALISED OEDEMA [None]
  - DEHYDRATION [None]
  - URINE OUTPUT DECREASED [None]
  - RENAL FAILURE ACUTE [None]
